FAERS Safety Report 9785802 (Version 1)
Quarter: 2013Q4

REPORT INFORMATION
  Report Type: Spontaneous
  Country: FR (occurrence: FR)
  Receive Date: 20131227
  Receipt Date: 20131227
  Transmission Date: 20140711
  Serious: Yes (Hospitalization, Other)
  Sender: FDA-Public Use
  Company Number: FR-PFIZER INC-2013365670

PATIENT
  Age: 81 Year
  Sex: Male

DRUGS (6)
  1. AMLOR [Suspect]
     Indication: HYPERTENSION
     Dosage: 10 MG, 1X/DAY
     Route: 048
     Dates: end: 20131211
  2. AMLOR [Suspect]
     Dosage: 5 MG, 1X/DAY
     Dates: start: 20131211
  3. DAONIL [Suspect]
     Indication: TYPE 2 DIABETES MELLITUS
     Dosage: 5 MG, 2X/DAY
     Route: 048
     Dates: end: 20131210
  4. HYTACAND [Suspect]
     Indication: HYPERTENSION
     Dosage: 8 MG/12.5 MG 1X/DAY
     Route: 048
     Dates: end: 20131211
  5. SPIFEN [Concomitant]
     Dosage: UNK
  6. KLIPAL CODEINE [Concomitant]
     Dosage: UNK

REACTIONS (5)
  - Orthostatic hypotension [Recovered/Resolved]
  - Diabetes mellitus inadequate control [Recovering/Resolving]
  - Fall [Unknown]
  - Dizziness [Unknown]
  - Muscular weakness [Unknown]
